FAERS Safety Report 4839916-0 (Version None)
Quarter: 2005Q4

REPORT INFORMATION
  Report Type: 
  Country: None (occurrence: None)
  Receive Date: 20051129
  Receipt Date: 20051123
  Transmission Date: 20060501
  Serious: Yes (Life-Threatening)
  Sender: FDA-Public Use
  Company Number: AU-ROCHE-425784

PATIENT
  Age: 56 Year
  Sex: Female

DRUGS (6)
  1. CEFTRIAXONE SODIUM [Suspect]
     Indication: DRUG USE FOR UNKNOWN INDICATION
     Route: 042
  2. AMITRIPTYLINE HCL [Concomitant]
  3. OXYBUTYNIN [Concomitant]
  4. ALPRAZOLAM [Concomitant]
  5. VENTOLIN [Concomitant]
  6. BACLOFEN [Concomitant]

REACTIONS (3)
  - ANAPHYLACTIC REACTION [None]
  - HYPOTENSION [None]
  - HYPOVENTILATION [None]
